FAERS Safety Report 14992023 (Version 2)
Quarter: 2019Q3

REPORT INFORMATION
  Report Type: Spontaneous
  Country: CA (occurrence: CA)
  Receive Date: 20180608
  Receipt Date: 20190717
  Transmission Date: 20191004
  Serious: Yes (Hospitalization, Other)
  Sender: FDA-Public Use
  Company Number: CA-PFIZER INC-2018230546

PATIENT
  Age: 69 Year
  Sex: Male
  Weight: 70 kg

DRUGS (7)
  1. VITAMIN D [Concomitant]
     Active Substance: VITAMIN D NOS
     Dosage: 2000 IU, DAILY
     Route: 048
  2. SERTRALINE HCL [Suspect]
     Active Substance: SERTRALINE HYDROCHLORIDE
     Dosage: 100 MG, DAILY
     Route: 048
  3. CALCIUM CARBONATE. [Concomitant]
     Active Substance: CALCIUM CARBONATE
     Dosage: 1250 MG, 2X/DAY
     Route: 048
  4. TRAZODONE [Concomitant]
     Active Substance: TRAZODONE HYDROCHLORIDE
     Dosage: 100 MG, 1X/DAY (NIGHTLY)
     Route: 048
  5. PREDNISONE. [Concomitant]
     Active Substance: PREDNISONE
     Dosage: 40 MG, DAILY
     Route: 048
  6. HYDROCHLOROTHIAZIDE. [Concomitant]
     Active Substance: HYDROCHLOROTHIAZIDE
     Dosage: 12.5 MG, DAILY
     Route: 048
  7. WARFARIN [Concomitant]
     Active Substance: WARFARIN
     Dosage: 10 MG, DAILY
     Route: 048

REACTIONS (7)
  - Chronic obstructive pulmonary disease [Unknown]
  - Small intestinal obstruction [Unknown]
  - Atrial fibrillation [Unknown]
  - Hepatitis C [Unknown]
  - Crohn^s disease [Unknown]
  - Asthma [Unknown]
  - Pulmonary embolism [Unknown]

NARRATIVE: CASE EVENT DATE: 201710
